FAERS Safety Report 8410102-0 (Version None)
Quarter: 2012Q2

REPORT INFORMATION
  Report Type: 
  Country: None (occurrence: None)
  Receive Date: 20120605
  Receipt Date: 20120521
  Transmission Date: 20120825
  Serious: Yes (Other)
  Sender: FDA-Public Use
  Company Number: US-ENDO PHARMACEUTICALS INC.-OPIR20120090

PATIENT
  Sex: Female

DRUGS (7)
  1. SENNA-MINT WAF [Concomitant]
     Indication: CONSTIPATION
  2. OPANA ER [Concomitant]
     Indication: PAIN
     Route: 048
     Dates: start: 20120501
  3. OPANA [Suspect]
     Indication: BREAKTHROUGH PAIN
     Route: 048
     Dates: start: 20070101
  4. AMITIZA [Concomitant]
     Indication: CONSTIPATION
  5. LACTULOSE [Concomitant]
     Indication: CONSTIPATION
  6. NEXIUM [Concomitant]
     Indication: GASTROOESOPHAGEAL REFLUX DISEASE
     Dosage: UNKNOWN
     Route: 048
  7. VITAMIN TAB [Concomitant]
     Indication: PRODUCT USED FOR UNKNOWN INDICATION

REACTIONS (1)
  - INTENTIONAL DRUG MISUSE [None]
